FAERS Safety Report 11061682 (Version 1)
Quarter: 2015Q2

REPORT INFORMATION
  Report Type: Spontaneous
  Country: US (occurrence: US)
  Receive Date: 20150424
  Receipt Date: 20150424
  Transmission Date: 20150821
  Serious: Yes (Other)
  Sender: FDA-Public Use
  Company Number: US-SA-2015SA050768

PATIENT
  Age: 64 Year
  Sex: Male

DRUGS (14)
  1. SOLOSTAR [Concomitant]
     Active Substance: DEVICE
     Dates: start: 20150415
  2. SOLOSTAR [Concomitant]
     Active Substance: DEVICE
  3. LISINOPRIL. [Concomitant]
     Active Substance: LISINOPRIL
  4. LANTUS SOLOSTAR [Suspect]
     Active Substance: INSULIN GLARGINE
     Indication: TYPE 2 DIABETES MELLITUS
     Dosage: DOSE:12 U EVERY TWO DAYS THEN TO 14 THEN 16 UNITS
     Route: 065
  5. LANTUS SOLOSTAR [Suspect]
     Active Substance: INSULIN GLARGINE
     Indication: TYPE 2 DIABETES MELLITUS
     Dosage: DOSE:10 UNIT(S)
     Route: 065
  6. METFORMIN [Concomitant]
     Active Substance: METFORMIN HYDROCHLORIDE
  7. LANTUS SOLOSTAR [Suspect]
     Active Substance: INSULIN GLARGINE
     Indication: TYPE 2 DIABETES MELLITUS
     Dosage: DOSE:20 UNIT(S)
     Route: 065
  8. LANTUS SOLOSTAR [Suspect]
     Active Substance: INSULIN GLARGINE
     Indication: TYPE 2 DIABETES MELLITUS
     Dosage: DOSE:24 UNIT(S)
     Route: 065
     Dates: start: 20150415
  9. SOLOSTAR [Concomitant]
     Active Substance: DEVICE
     Dates: start: 2013
  10. LANTUS SOLOSTAR [Suspect]
     Active Substance: INSULIN GLARGINE
     Indication: TYPE 2 DIABETES MELLITUS
     Dosage: DOSE:22 UNIT(S)
     Route: 065
  11. SOLOSTAR [Concomitant]
     Active Substance: DEVICE
  12. SOLOSTAR [Concomitant]
     Active Substance: DEVICE
  13. LANTUS SOLOSTAR [Suspect]
     Active Substance: INSULIN GLARGINE
     Indication: TYPE 2 DIABETES MELLITUS
     Dosage: DOSE:5 UNIT(S)
     Route: 065
     Dates: start: 2013
  14. SOLOSTAR [Concomitant]
     Active Substance: DEVICE

REACTIONS (7)
  - Glaucoma [Unknown]
  - Palpitations [Unknown]
  - Glycosylated haemoglobin increased [Unknown]
  - Off label use [Unknown]
  - Tremor [Unknown]
  - Hunger [Unknown]
  - Blood glucose increased [Unknown]
